FAERS Safety Report 19884357 (Version 1)
Quarter: 2021Q3

REPORT INFORMATION
  Report Type: Spontaneous
  Country: US (occurrence: US)
  Receive Date: 20210923
  Receipt Date: 20210923
  Transmission Date: 20211014
  Serious: No
  Sender: FDA-Public Use
  Company Number: None

PATIENT
  Age: 74 Year
  Sex: Male
  Weight: 67 kg

DRUGS (1)
  1. OLUMIANT [Suspect]
     Active Substance: BARICITINIB
     Route: 048
     Dates: start: 20210901, end: 20210910

REACTIONS (8)
  - Splenomegaly [None]
  - Hepatic cirrhosis [None]
  - Leukopenia [None]
  - Thrombocytopenia [None]
  - Anaemia [None]
  - Pancytopenia [None]
  - Portal hypertension [None]
  - Iatrogenic injury [None]

NARRATIVE: CASE EVENT DATE: 20210910
